FAERS Safety Report 4488881-7 (Version None)
Quarter: 2004Q4

REPORT INFORMATION
  Report Type: 
  Country: None (occurrence: None)
  Receive Date: 20041029
  Receipt Date: 20041025
  Transmission Date: 20050328
  Serious: Yes (Life-Threatening, Disabling)
  Sender: FDA-Public Use
  Company Number: US-MERCK-0410USA03673

PATIENT
  Age: 62 Year
  Sex: Female

DRUGS (5)
  1. VIOXX [Suspect]
     Indication: ANALGESIC EFFECT
     Route: 048
     Dates: start: 20000101, end: 20040930
  2. VIOXX [Suspect]
     Indication: MUSCLE DISORDER
     Route: 048
     Dates: start: 20000101, end: 20040930
  3. PEPCID [Concomitant]
     Route: 048
  4. NEXIUM [Concomitant]
     Route: 065
  5. GEMFIBROZIL [Concomitant]
     Route: 065

REACTIONS (1)
  - GASTRITIS [None]
